FAERS Safety Report 23872857 (Version 1)
Quarter: 2024Q2

REPORT INFORMATION
  Report Type: Report from Study
  Country: US (occurrence: US)
  Receive Date: 20240520
  Receipt Date: 20240520
  Transmission Date: 20240717
  Serious: Yes (Other)
  Sender: FDA-Public Use
  Company Number: US-TEVA-VS-3197961

PATIENT
  Sex: Male

DRUGS (2)
  1. AUSTEDO [Suspect]
     Active Substance: DEUTETRABENAZINE
     Indication: Tardive dyskinesia
     Route: 048
  2. Remeron SOLT [Concomitant]
     Dosage: TBD 45 MG

REACTIONS (3)
  - Face injury [Recovering/Resolving]
  - Fall [Recovering/Resolving]
  - Tenderness [Not Recovered/Not Resolved]
